FAERS Safety Report 5448844-1 (Version None)
Quarter: 2007Q3

REPORT INFORMATION
  Report Type: 
  Country: None (occurrence: None)
  Receive Date: 20070911
  Receipt Date: 20070717
  Transmission Date: 20080115
  Serious: No
  Sender: FDA-Public Use
  Company Number: US-BRISTOL-MYERS SQUIBB COMPANY-13848296

PATIENT
  Age: 63 Year
  Sex: Female
  Weight: 79 kg

DRUGS (6)
  1. EMSAM [Suspect]
     Route: 062
     Dates: start: 20061201
  2. LISINOPRIL [Concomitant]
  3. PROPRANOLOL [Concomitant]
  4. XANAX [Concomitant]
  5. AMBIEN [Concomitant]
  6. VYTORIN [Concomitant]

REACTIONS (1)
  - APPLICATION SITE RASH [None]
